FAERS Safety Report 20680246 (Version 1)
Quarter: 2022Q2

REPORT INFORMATION
  Report Type: Spontaneous
  Country: US (occurrence: US)
  Receive Date: 20220406
  Receipt Date: 20220406
  Transmission Date: 20220721
  Serious: No
  Sender: FDA-Public Use
  Company Number: US-BIOMARINAP-US-2022-142412

PATIENT
  Age: 26 Year
  Sex: Female

DRUGS (1)
  1. PALYNZIQ [Suspect]
     Active Substance: PEGVALIASE-PQPZ
     Indication: Phenylketonuria
     Dosage: 2.5 MILLIGRAM
     Route: 058
     Dates: start: 20220307

REACTIONS (1)
  - Injection site irritation [Recovering/Resolving]

NARRATIVE: CASE EVENT DATE: 20220321
